FAERS Safety Report 10877588 (Version 1)
Quarter: 2015Q1

REPORT INFORMATION
  Report Type: Spontaneous
  Country: US (occurrence: None)
  Receive Date: 20150224
  Receipt Date: 20150224
  Transmission Date: 20150721
  Serious: No
  Sender: FDA-Public Use
  Company Number: 2015-00021

PATIENT
  Age: 41 Year
  Sex: Female
  Weight: 70.31 kg

DRUGS (1)
  1. ZICAM ALLERGY RELIEF [Suspect]
     Active Substance: GALPHIMIA GLAUCA FLOWERING TOP\HISTAMINE DIHYDROCHLORIDE\LUFFA OPERCULATA FRUIT\SULFUR
     Indication: NASOPHARYNGITIS
     Dosage: INTRANASAL EVERY 12 HOURS X 3
     Dates: start: 20150209, end: 20150211

REACTIONS (1)
  - Anosmia [None]

NARRATIVE: CASE EVENT DATE: 20150211
